FAERS Safety Report 6390854-4 (Version None)
Quarter: 2009Q4

REPORT INFORMATION
  Report Type: 
  Country: None (occurrence: None)
  Receive Date: 20091003
  Receipt Date: 20090916
  Transmission Date: 20100525
  Serious: Yes (Life-Threatening, Hospitalization)
  Sender: FDA-Public Use
  Company Number: DSA_41712_2009

PATIENT
  Sex: Male

DRUGS (14)
  1. DILTIAZEM HYDROCHLORIDE [Suspect]
     Indication: DRUG USE FOR UNKNOWN INDICATION
     Dosage: FREQUENCY UNKNOWN, ORAL
     Route: 048
     Dates: start: 20090503, end: 20090509
  2. DIGOXIN [Suspect]
     Indication: DRUG USE FOR UNKNOWN INDICATION
     Dosage: DF, ORAL
     Route: 048
     Dates: end: 20090509
  3. BISOPROLOL FUMARATE [Suspect]
     Indication: DRUG USE FOR UNKNOWN INDICATION
     Dosage: 10 MG, QD, ORAL
     Route: 048
     Dates: start: 20090504, end: 20090509
  4. TRIATEC [Concomitant]
  5. APROVEL [Concomitant]
  6. CARDENSIEL [Concomitant]
  7. FUROSEMIDE [Concomitant]
  8. TAHOR [Concomitant]
  9. LANTUS [Concomitant]
  10. APIDRA [Concomitant]
  11. PREVISCAN [Concomitant]
  12. MEDIATOR [Concomitant]
  13. LYRICA [Concomitant]
  14. GABAPENTIN [Concomitant]

REACTIONS (4)
  - ATRIOVENTRICULAR BLOCK COMPLETE [None]
  - CARDIOGENIC SHOCK [None]
  - DIABETIC NEPHROPATHY [None]
  - RENAL FAILURE [None]
